FAERS Safety Report 13177868 (Version 1)
Quarter: 2017Q1

REPORT INFORMATION
  Report Type: Spontaneous
  Country: IT (occurrence: IT)
  Receive Date: 20170201
  Receipt Date: 20170201
  Transmission Date: 20170428
  Serious: Yes (Hospitalization)
  Sender: FDA-Public Use
  Company Number: IT-BAXTER-2017BAX004525

PATIENT
  Age: 67 Year
  Sex: Female
  Weight: 68 kg

DRUGS (11)
  1. DOBETIN [Concomitant]
     Active Substance: CYANOCOBALAMIN
     Indication: PRODUCT USED FOR UNKNOWN INDICATION
     Route: 065
  2. LASIX [Concomitant]
     Active Substance: FUROSEMIDE
     Indication: CARDIOMYOPATHY
     Route: 048
  3. SODIO CLORURO 0,9% BAXTER [Suspect]
     Active Substance: SODIUM CHLORIDE
     Indication: MEDICATION DILUTION
     Dosage: LOW OXYGEN, DILUENT FOPR ALIMTA
     Route: 042
     Dates: start: 20161121, end: 20161220
  4. ALIMTA [Suspect]
     Active Substance: PEMETREXED DISODIUM
     Indication: LUNG NEOPLASM MALIGNANT
     Route: 042
     Dates: start: 20161121, end: 20161220
  5. PANTORC [Concomitant]
     Active Substance: PANTOPRAZOLE SODIUM
     Indication: GASTRIC DISORDER
     Route: 048
  6. CARBOPLATINUM [Suspect]
     Active Substance: CARBOPLATIN
     Indication: LUNG NEOPLASM MALIGNANT
     Dosage: 300MG/60ML
     Route: 042
     Dates: start: 20161121, end: 20161220
  7. RAMIPRIL. [Concomitant]
     Active Substance: RAMIPRIL
     Indication: HYPERTENSION
     Route: 048
  8. CONGESCOR [Concomitant]
     Active Substance: BISOPROLOL
     Indication: CARDIOMYOPATHY
     Route: 048
  9. ZYLORIC [Concomitant]
     Active Substance: ALLOPURINOL
     Indication: HYPERURICAEMIA
     Route: 048
  10. MEDROL [Concomitant]
     Active Substance: METHYLPREDNISOLONE
     Indication: DYSPNOEA
     Route: 048
  11. FOLINGRAV [Concomitant]
     Indication: PRODUCT USED FOR UNKNOWN INDICATION
     Route: 065

REACTIONS (1)
  - Cardiac failure acute [Recovered/Resolved]

NARRATIVE: CASE EVENT DATE: 20161221
